FAERS Safety Report 15272596 (Version 1)
Quarter: 2018Q3

REPORT INFORMATION
  Report Type: Spontaneous
  Country: US (occurrence: US)
  Receive Date: 20180727
  Receipt Date: 20180727
  Transmission Date: 20181010
  Serious: No
  Sender: FDA-Public Use
  Company Number: None

PATIENT
  Age: 63 Year
  Sex: Female

DRUGS (1)
  1. ENBREL [Suspect]
     Active Substance: ETANERCEPT
     Indication: ILL-DEFINED DISORDER
     Route: 058
     Dates: start: 20180612, end: 20180704

REACTIONS (5)
  - Conjunctivitis [None]
  - Rash generalised [None]
  - Sinusitis [None]
  - Cough [None]
  - Candida infection [None]

NARRATIVE: CASE EVENT DATE: 20180701
